FAERS Safety Report 9128673 (Version 1)
Quarter: 2013Q1

REPORT INFORMATION
  Report Type: Spontaneous
  Country: GB (occurrence: GB)
  Receive Date: 20130228
  Receipt Date: 20130228
  Transmission Date: 20140127
  Serious: Yes (Hospitalization)
  Sender: FDA-Public Use
  Company Number: PHHY2013GB019735

PATIENT
  Age: 40 Year
  Sex: Female
  Weight: 57.15 kg

DRUGS (1)
  1. DICLOFENAC [Suspect]
     Indication: METATARSALGIA
     Route: 048

REACTIONS (4)
  - Heart rate decreased [Recovered/Resolved]
  - Malaise [Recovered/Resolved]
  - Convulsion [Recovered/Resolved]
  - Dizziness [Recovered/Resolved]
